FAERS Safety Report 8016579-7 (Version None)
Quarter: 2011Q4

REPORT INFORMATION
  Report Type: 
  Country: None (occurrence: None)
  Receive Date: 20111230
  Receipt Date: 20111221
  Transmission Date: 20120403
  Serious: Yes (Other)
  Sender: FDA-Public Use
  Company Number: DK-ASTRAZENECA-2011SE77655

PATIENT
  Age: 36 Year
  Sex: Female

DRUGS (2)
  1. XYLOCAINE W/ EPINEPHRENE [Suspect]
  2. SCANDONEST-ADRENALIN [Suspect]

REACTIONS (3)
  - HYPOAESTHESIA [None]
  - MUSCLE SPASMS [None]
  - DYSPNOEA [None]
